FAERS Safety Report 15044676 (Version 1)
Quarter: 2018Q2

REPORT INFORMATION
  Report Type: Spontaneous
  Country: GB (occurrence: GB)
  Receive Date: 20180621
  Receipt Date: 20180621
  Transmission Date: 20180711
  Serious: Yes (Hospitalization, Other)
  Sender: FDA-Public Use
  Company Number: GB-ASTRAZENECA-2018SE77324

PATIENT
  Age: 72 Year
  Sex: Female
  Weight: 63.5 kg

DRUGS (4)
  1. OSIMERTINIB. [Suspect]
     Active Substance: OSIMERTINIB
     Indication: LUNG NEOPLASM MALIGNANT
     Route: 048
     Dates: start: 20180314, end: 20180528
  2. MORPHINE [Concomitant]
     Active Substance: MORPHINE
  3. HALOPERIDOL. [Concomitant]
     Active Substance: HALOPERIDOL
  4. SIMVASTATIN. [Concomitant]
     Active Substance: SIMVASTATIN
     Dosage: 40.0MG UNKNOWN

REACTIONS (2)
  - Liver disorder [Not Recovered/Not Resolved]
  - Liver function test abnormal [Not Recovered/Not Resolved]

NARRATIVE: CASE EVENT DATE: 20180527
